FAERS Safety Report 6341370-7 (Version None)
Quarter: 2009Q3

REPORT INFORMATION
  Report Type: 
  Country: None (occurrence: None)
  Receive Date: 20090901
  Receipt Date: 20090901
  Transmission Date: 20100115
  Serious: Yes (Other)
  Sender: FDA-Public Use
  Company Number: None

PATIENT
  Age: 75 Year
  Sex: Male

DRUGS (5)
  1. IPRATROPIUM BROMIDE AND ALBUTEROL SULFATE [Suspect]
     Indication: ASTHMA
     Dosage: USE 1 VIAL FOUR TIMES A DAY
     Dates: start: 20090609
  2. IPRATROPIUM BROMIDE AND ALBUTEROL SULFATE [Suspect]
     Indication: CHRONIC OBSTRUCTIVE PULMONARY DISEASE
     Dosage: USE 1 VIAL FOUR TIMES A DAY
     Dates: start: 20090609
  3. SIMVASTATIN [Concomitant]
  4. NIASPAN ER [Concomitant]
  5. CARVEDILOL [Concomitant]

REACTIONS (2)
  - CHOKING [None]
  - DYSPNOEA [None]
